FAERS Safety Report 19408276 (Version 2)
Quarter: 2021Q3

REPORT INFORMATION
  Report Type: Spontaneous
  Country: US (occurrence: US)
  Receive Date: 20210611
  Receipt Date: 20210714
  Transmission Date: 20211014
  Serious: No
  Sender: FDA-Public Use
  Company Number: US-VIFOR (INTERNATIONAL) INC.-VIT-2021-04475

PATIENT
  Sex: Female

DRUGS (2)
  1. VELTASSA [Suspect]
     Active Substance: PATIROMER
     Indication: HYPERKALAEMIA
     Dates: start: 202012
  2. VELTASSA [Suspect]
     Active Substance: PATIROMER
     Dosage: HALF A 16.8 GRAMS PACKET TWICE WEEKLY
     Dates: start: 20210511

REACTIONS (3)
  - Off label use [Unknown]
  - Product use complaint [Unknown]
  - Nausea [Not Recovered/Not Resolved]
